FAERS Safety Report 15440135 (Version 1)
Quarter: 2018Q3

REPORT INFORMATION
  Report Type: Spontaneous
  Country: BR (occurrence: BR)
  Receive Date: 20180928
  Receipt Date: 20180928
  Transmission Date: 20181010
  Serious: Yes (Other)
  Sender: FDA-Public Use
  Company Number: BR-009507513-1809BRA010413

PATIENT
  Age: 24 Year
  Sex: Male

DRUGS (1)
  1. BRIDION [Suspect]
     Active Substance: SUGAMMADEX
     Dosage: UNK

REACTIONS (5)
  - Hypotension [Recovered/Resolved]
  - Pulseless electrical activity [Recovered/Resolved]
  - Tachycardia [Recovered/Resolved]
  - Anaphylactic shock [Recovered/Resolved]
  - Hypoxia [Recovered/Resolved]
